FAERS Safety Report 5952091-4 (Version None)
Quarter: 2008Q4

REPORT INFORMATION
  Report Type: 
  Country: None (occurrence: None)
  Receive Date: 20081113
  Receipt Date: 20080328
  Transmission Date: 20090506
  Serious: No
  Sender: FDA-Public Use
  Company Number: A0718093A

PATIENT
  Age: 66 Year
  Sex: Female

DRUGS (10)
  1. COREG [Suspect]
     Dosage: 20TAB TWICE PER DAY
     Route: 048
     Dates: start: 20040101
  2. COREG CR [Suspect]
     Dosage: 80MG PER DAY
     Route: 048
  3. LIPITOR [Concomitant]
  4. ALTACE [Concomitant]
  5. DIGITEK [Concomitant]
  6. METFORMIN HCL [Concomitant]
  7. ASPIRIN [Concomitant]
  8. CINNAMON [Concomitant]
  9. EVENING PRIMROSE OIL [Concomitant]
  10. GREEN TEA EXTRACT [Concomitant]

REACTIONS (2)
  - INSOMNIA [None]
  - RHINORRHOEA [None]
